FAERS Safety Report 6626672-9 (Version None)
Quarter: 2010Q1

REPORT INFORMATION
  Report Type: 
  Country: None (occurrence: None)
  Receive Date: 20100308
  Receipt Date: 20100218
  Transmission Date: 20100710
  Serious: Yes (Death, Hospitalization)
  Sender: FDA-Public Use
  Company Number: 2009BI022088

PATIENT
  Age: 52 Year
  Sex: Male

DRUGS (13)
  1. ZEVALIN [Suspect]
     Indication: FOLLICLE CENTRE LYMPHOMA, FOLLICULAR GRADE I, II, III
     Dosage: 1225 MBQ; 1X; IV
     Route: 042
     Dates: start: 20090203, end: 20090210
  2. RITUXAN [Concomitant]
  3. AMLODIN OD [Concomitant]
  4. DIFLUCAN [Concomitant]
  5. LANSOPRAZOLE [Concomitant]
  6. BAKTAR [Concomitant]
  7. POLARAMINE [Concomitant]
  8. LOXONIN [Concomitant]
  9. MYSLEE [Concomitant]
  10. OXYCONTIN [Concomitant]
  11. OXINORM [Concomitant]
  12. RINDERON [Concomitant]
  13. FLUDEOXYGLUCOSE [Concomitant]

REACTIONS (4)
  - BONE MARROW FAILURE [None]
  - CONSTIPATION [None]
  - FOLLICLE CENTRE LYMPHOMA, FOLLICULAR GRADE I, II, III [None]
  - MALIGNANT NEOPLASM PROGRESSION [None]
